FAERS Safety Report 24847843 (Version 2)
Quarter: 2025Q1

REPORT INFORMATION
  Report Type: Report from Study
  Country: PK (occurrence: PK)
  Receive Date: 20250116
  Receipt Date: 20250320
  Transmission Date: 20250409
  Serious: Yes (Other)
  Sender: NOVARTIS
  Company Number: PK-002147023-NVSC2025PK006055

PATIENT
  Age: 38 Year
  Sex: Male

DRUGS (2)
  1. SECUKINUMAB [Suspect]
     Active Substance: SECUKINUMAB
     Indication: Psoriatic arthropathy
     Dosage: 150 MG, QMO (WITHOUT LOADING DOSE)
     Route: 058
     Dates: start: 20240201, end: 20241029
  2. SECUKINUMAB [Suspect]
     Active Substance: SECUKINUMAB
     Route: 058
     Dates: start: 202501

REACTIONS (3)
  - Lower respiratory tract infection [Not Recovered/Not Resolved]
  - Pyrexia [Not Recovered/Not Resolved]
  - Incorrect dose administered [Unknown]

NARRATIVE: CASE EVENT DATE: 20250104
